FAERS Safety Report 5410002-4 (Version None)
Quarter: 2007Q3

REPORT INFORMATION
  Report Type: 
  Country: None (occurrence: None)
  Receive Date: 20070809
  Receipt Date: 20070802
  Transmission Date: 20080115
  Serious: Yes (Life-Threatening, Hospitalization, Other)
  Sender: FDA-Public Use
  Company Number: JP-ABBOTT-02P-087-0195726-00

PATIENT
  Sex: Male

DRUGS (24)
  1. KALETRA [Suspect]
     Indication: HIV INFECTION
     Route: 048
     Dates: start: 20010227, end: 20060317
  2. KALETRA [Suspect]
     Route: 048
     Dates: start: 20060420, end: 20061011
  3. KALETRA [Suspect]
     Indication: HIV INFECTION
     Route: 048
     Dates: start: 20061012
  4. LAMIVUDINE [Suspect]
     Indication: HIV INFECTION
     Route: 048
     Dates: start: 19991126, end: 20060317
  5. LAMIVUDINE [Suspect]
     Route: 048
     Dates: start: 20060406
  6. NELFINAVIR [Suspect]
     Indication: HIV INFECTION
     Route: 048
     Dates: start: 20010227, end: 20060317
  7. NELFINAVIR [Suspect]
     Route: 048
     Dates: start: 20010227, end: 20060317
  8. EFAVIRENZ [Suspect]
     Indication: HIV INFECTION
     Route: 048
     Dates: start: 20010227, end: 20060317
  9. EFAVIRENZ [Suspect]
     Route: 048
     Dates: start: 20010227, end: 20060317
  10. EFAVIRENZ [Suspect]
     Route: 048
     Dates: start: 20060406
  11. DIDANOSINE [Suspect]
     Indication: HIV INFECTION
     Route: 048
     Dates: start: 19991101, end: 19991119
  12. AMPRENAVIR [Suspect]
     Indication: HIV INFECTION
     Route: 048
     Dates: start: 19991101, end: 19991119
  13. STAVUDINE [Suspect]
     Indication: HIV INFECTION
     Route: 048
     Dates: start: 19991101, end: 19991119
  14. CLARITHROMYCIN [Concomitant]
     Indication: HIV INFECTION
     Route: 048
     Dates: start: 19991101, end: 20011029
  15. BACTRIM [Concomitant]
     Indication: ANTIFUNGAL PROPHYLAXIS
     Route: 048
     Dates: start: 20010401
  16. ETHAMBUTOL DIHYDROCHLORIDE [Concomitant]
     Indication: MYCOBACTERIUM AVIUM COMPLEX INFECTION
     Route: 048
     Dates: start: 19991101, end: 20011029
  17. HYDROCORTISONE [Concomitant]
     Indication: ADRENAL INSUFFICIENCY
     Route: 048
     Dates: start: 19991101, end: 20060317
  18. HYDROCORTISONE [Concomitant]
     Route: 048
     Dates: start: 20060401
  19. PENTAZOCINE LACTATE [Concomitant]
     Route: 048
     Dates: start: 20001026
  20. BROTIZOLAM [Concomitant]
     Indication: INSOMNIA
     Route: 048
     Dates: start: 20001109, end: 20010620
  21. ZOPICLONE [Concomitant]
     Indication: INSOMNIA
     Dosage: 0.5 TO 1 TABLET
     Route: 048
     Dates: start: 20010621
  22. NORVIR [Concomitant]
     Indication: HIV INFECTION
     Route: 048
     Dates: start: 19991126, end: 20010226
  23. SAQUINAVIR [Concomitant]
     Indication: HIV INFECTION
     Route: 048
     Dates: start: 19991126, end: 20010226
  24. ABACAVIR [Concomitant]
     Indication: HIV INFECTION
     Route: 048
     Dates: start: 20010227, end: 20010306

REACTIONS (11)
  - BLOOD AMYLASE INCREASED [None]
  - CENTRAL NERVOUS SYSTEM LYMPHOMA [None]
  - CEREBRAL HAEMORRHAGE [None]
  - DISEASE RECURRENCE [None]
  - HYPERGLYCAEMIA [None]
  - HYPERLIPIDAEMIA [None]
  - HYPOTHYROIDISM [None]
  - NECROSIS [None]
  - PANCYTOPENIA [None]
  - PNEUMONIA ASPIRATION [None]
  - SICK SINUS SYNDROME [None]
